FAERS Safety Report 5013343-8 (Version None)
Quarter: 2006Q2

REPORT INFORMATION
  Report Type: 
  Country: None (occurrence: None)
  Receive Date: 20060530
  Receipt Date: 20060414
  Transmission Date: 20061013
  Serious: No
  Sender: FDA-Public Use
  Company Number: US-GLAXOSMITHKLINE-A0601849A

PATIENT

DRUGS (1)
  1. WELLBUTRIN XL [Suspect]
     Dosage: 450MG PER DAY
     Route: 048
     Dates: end: 20060412

REACTIONS (1)
  - SEXUAL DYSFUNCTION [None]
